FAERS Safety Report 5026729-2 (Version None)
Quarter: 2006Q2

REPORT INFORMATION
  Report Type: 
  Country: None (occurrence: None)
  Receive Date: 20060608
  Receipt Date: 20060531
  Transmission Date: 20061013
  Serious: Yes (Other)
  Sender: FDA-Public Use
  Company Number: 2006070617

PATIENT
  Age: 12 Year
  Sex: Female

DRUGS (2)
  1. DILANTIN [Suspect]
     Indication: ILL-DEFINED DISORDER
  2. CARBAMAZEPINE [Suspect]
     Indication: ILL-DEFINED DISORDER

REACTIONS (6)
  - AGRANULOCYTOSIS [None]
  - DIARRHOEA [None]
  - ERYTHEMA MULTIFORME [None]
  - HEPATITIS [None]
  - PYREXIA [None]
  - STOMATITIS [None]
